FAERS Safety Report 7249801-5 (Version None)
Quarter: 2011Q1

REPORT INFORMATION
  Report Type: 
  Country: None (occurrence: None)
  Receive Date: 20110128
  Receipt Date: 20100406
  Transmission Date: 20110831
  Serious: No
  Sender: FDA-Public Use
  Company Number: A0854328A

PATIENT
  Age: 62 Year
  Sex: Male

DRUGS (4)
  1. CLONAZEPAM [Concomitant]
  2. PROZAC [Concomitant]
  3. TOPAMAX [Concomitant]
  4. WELLBUTRIN XL [Suspect]
     Indication: DEPRESSION
     Dosage: 300MG PER DAY
     Route: 048
     Dates: start: 20090701

REACTIONS (2)
  - MUSCLE RIGIDITY [None]
  - TINNITUS [None]
